FAERS Safety Report 19472138 (Version 1)
Quarter: 2021Q2

REPORT INFORMATION
  Report Type: Spontaneous
  Country: IT (occurrence: IT)
  Receive Date: 20210629
  Receipt Date: 20210629
  Transmission Date: 20210717
  Serious: Yes (Hospitalization, Other)
  Sender: FDA-Public Use
  Company Number: IT-ACCORD-229743

PATIENT
  Age: 44 Year
  Sex: Female

DRUGS (9)
  1. REMDESIVIR. [Interacting]
     Active Substance: REMDESIVIR
     Indication: COVID-19
     Route: 065
  2. DARUNAVIR/COBICISTAT [Interacting]
     Active Substance: COBICISTAT\DARUNAVIR ETHANOLATE
     Indication: COVID-19
     Route: 065
  3. HYDROXYCHLOROQUINE [Suspect]
     Active Substance: HYDROXYCHLOROQUINE
     Indication: COVID-19
     Route: 065
  4. AZITHROMYCIN ANHYDROUS. [Interacting]
     Active Substance: AZITHROMYCIN ANHYDROUS
     Indication: COVID-19
  5. CEFTRIAXONE. [Interacting]
     Active Substance: CEFTRIAXONE
     Indication: COVID-19
     Route: 065
  6. FLUCONAZOLE. [Interacting]
     Active Substance: FLUCONAZOLE
     Indication: COVID-19
     Route: 065
  7. ANAKINRA [Interacting]
     Active Substance: ANAKINRA
     Indication: COVID-19
     Route: 065
  8. TOCILIZUMAB. [Interacting]
     Active Substance: TOCILIZUMAB
     Indication: COVID-19
     Route: 065
  9. AZITHROMYCIN ANHYDROUS. [Interacting]
     Active Substance: AZITHROMYCIN ANHYDROUS

REACTIONS (5)
  - Drug interaction [Unknown]
  - Hypertransaminasaemia [Recovering/Resolving]
  - Primary biliary cholangitis [Recovering/Resolving]
  - Guillain-Barre syndrome [Recovering/Resolving]
  - Off label use [Unknown]
